FAERS Safety Report 9870456 (Version 3)
Quarter: 2014Q4

REPORT INFORMATION
  Report Type: Spontaneous
  Country: US (occurrence: US)
  Receive Date: 20140205
  Receipt Date: 20141013
  Transmission Date: 20150529
  Serious: Yes (Hospitalization, Other)
  Sender: FDA-Public Use
  Company Number: US-009507513-1402USA001261

PATIENT
  Sex: Female
  Weight: 106.8 kg

DRUGS (2)
  1. NUVARING [Suspect]
     Active Substance: ETHINYL ESTRADIOL\ETONOGESTREL
     Indication: PRODUCT USED FOR UNKNOWN INDICATION
     Route: 067
  2. ALBUTEROL SULFATE. [Concomitant]
     Active Substance: ALBUTEROL SULFATE
     Indication: ASTHMA
     Dosage: 3 PUFFS, 7 X PER DAY
     Route: 055

REACTIONS (13)
  - Pain in extremity [Unknown]
  - Rhinorrhoea [Unknown]
  - Vena cava filter insertion [Unknown]
  - Vomiting [Unknown]
  - Pulmonary embolism [Unknown]
  - Muscle spasms [Unknown]
  - Maternal exposure before pregnancy [Unknown]
  - Retroperitoneal haemorrhage [Unknown]
  - Vena cava filter removal [Unknown]
  - Anticoagulation drug level below therapeutic [Unknown]
  - Asthma [Unknown]
  - Deep vein thrombosis [Unknown]
  - Pain [Unknown]

NARRATIVE: CASE EVENT DATE: 2000
